FAERS Safety Report 6228154-5 (Version None)
Quarter: 2009Q2

REPORT INFORMATION
  Report Type: 
  Country: None (occurrence: None)
  Receive Date: 20090612
  Receipt Date: 20090601
  Transmission Date: 20091009
  Serious: Yes (Hospitalization)
  Sender: FDA-Public Use
  Company Number: US-ELI_LILLY_AND_COMPANY-US200906000573

PATIENT
  Sex: Female

DRUGS (2)
  1. CYMBALTA [Suspect]
     Indication: DEPRESSION
     Dosage: 30 MG, UNK
     Dates: start: 20090501, end: 20090101
  2. CYMBALTA [Suspect]
     Dosage: 60 MG, UNK
     Dates: start: 20090101

REACTIONS (7)
  - AGGRESSION [None]
  - BALANCE DISORDER [None]
  - FALL [None]
  - FRACTURE [None]
  - IRRITABILITY [None]
  - MEMORY IMPAIRMENT [None]
  - PARANOIA [None]
